FAERS Safety Report 5375026-4 (Version None)
Quarter: 2007Q2

REPORT INFORMATION
  Report Type: 
  Country: None (occurrence: None)
  Receive Date: 20070629
  Receipt Date: 20070628
  Transmission Date: 20071010
  Serious: Yes (Hospitalization)
  Sender: FDA-Public Use
  Company Number: IT-BRISTOL-MYERS SQUIBB COMPANY-13829718

PATIENT
  Age: 92 Year
  Sex: Female

DRUGS (4)
  1. TRITTICO [Suspect]
     Indication: DEPRESSION
     Dosage: 15 DROPS PER DAY
     Route: 048
     Dates: start: 20070612, end: 20070617
  2. MODOPAR [Concomitant]
  3. ZOLPIDEM TARTRATE [Concomitant]
  4. GLIBOMET [Concomitant]

REACTIONS (3)
  - BLOOD PRESSURE INCREASED [None]
  - HEADACHE [None]
  - HYPERHIDROSIS [None]
